FAERS Safety Report 5392592-3 (Version None)
Quarter: 2007Q3

REPORT INFORMATION
  Report Type: 
  Country: None (occurrence: None)
  Receive Date: 20070720
  Receipt Date: 20070711
  Transmission Date: 20080115
  Serious: Yes (Other)
  Sender: FDA-Public Use
  Company Number: US-GENENTECH-243592

PATIENT
  Age: 66 Week
  Sex: Male

DRUGS (3)
  1. BEVACIZUMAB [Suspect]
     Indication: NON-SMALL CELL LUNG CANCER
     Dosage: 15 MG/KG, SINGLE
     Dates: start: 20070227
  2. PACLITAXEL [Concomitant]
     Indication: NON-SMALL CELL LUNG CANCER
     Dosage: 200 MG/M2, UNK
  3. CARBOPLATIN [Concomitant]
     Indication: NON-SMALL CELL LUNG CANCER
     Dosage: 6 AUC, UNK

REACTIONS (2)
  - METASTASES TO CENTRAL NERVOUS SYSTEM [None]
  - RADIATION PNEUMONITIS [None]
